FAERS Safety Report 18415500 (Version 1)
Quarter: 2020Q4

REPORT INFORMATION
  Report Type: Spontaneous
  Country: US (occurrence: US)
  Receive Date: 20201022
  Receipt Date: 20201022
  Transmission Date: 20210114
  Serious: Yes (Hospitalization)
  Sender: FDA-Public Use
  Company Number: None

PATIENT
  Sex: Male

DRUGS (9)
  1. POLYETH [Concomitant]
  2. MIRTAZAPINE. [Concomitant]
     Active Substance: MIRTAZAPINE
  3. CLOBETASOL [Concomitant]
     Active Substance: CLOBETASOL
  4. LINZESS [Concomitant]
     Active Substance: LINACLOTIDE
  5. ONDAN SERTRON [Concomitant]
  6. SCOPOLAMINE [Concomitant]
     Active Substance: SCOPOLAMINE
  7. HUMIRA [Suspect]
     Active Substance: ADALIMUMAB
     Indication: PSORIASIS
     Dosage: ?          OTHER FREQUENCY:EVERY 7 DAYS;?
     Route: 058
     Dates: start: 20190207
  8. HYRDOXYZ [Concomitant]
  9. DESOXIMETAS [Concomitant]

REACTIONS (1)
  - Gallbladder operation [None]
